FAERS Safety Report 24464381 (Version 1)
Quarter: 2024Q4

REPORT INFORMATION
  Report Type: Report from Study
  Country: US (occurrence: US)
  Receive Date: 20241018
  Receipt Date: 20241018
  Transmission Date: 20250114
  Serious: No
  Sender: ROCHE
  Company Number: US-ROCHE-3490178

PATIENT
  Age: 57 Year
  Sex: Female

DRUGS (8)
  1. XOLAIR [Suspect]
     Active Substance: OMALIZUMAB
     Indication: Asthma
     Route: 058
  2. XOLAIR [Suspect]
     Active Substance: OMALIZUMAB
  3. ALBUTEROL SULFATE [Concomitant]
     Active Substance: ALBUTEROL SULFATE
     Indication: Wheezing
     Dosage: INHALE 2 PUFFS  INTO THE LUNGS UPTO 30 DAY
     Route: 065
     Dates: start: 20230630, end: 20230730
  4. ALBUTEROL SULFATE [Concomitant]
     Active Substance: ALBUTEROL SULFATE
     Dosage: INHALE 2 PUFFS  INTO THE LUNGS UPTO 30 DAY
     Route: 065
     Dates: start: 20230329, end: 20230428
  5. ALBUTEROL SULFATE [Concomitant]
     Active Substance: ALBUTEROL SULFATE
     Dosage: INHALE 2 PUFFS  INTO THE LUNGS UPTO 30 DAY
     Route: 065
     Dates: start: 20230426, end: 20230526
  6. IBUPROFEN [Concomitant]
     Active Substance: IBUPROFEN
     Indication: Pyrexia
     Route: 048
  7. TRELEGY ELLIPTA [Concomitant]
     Active Substance: FLUTICASONE FUROATE\UMECLIDINIUM BROMIDE\VILANTEROL TRIFENATATE
     Dosage: 100 MCG?INHALE 1 PUFF DAILY INTO THE LUNGS
     Dates: start: 20230630, end: 20231005
  8. TRELEGY ELLIPTA [Concomitant]
     Active Substance: FLUTICASONE FUROATE\UMECLIDINIUM BROMIDE\VILANTEROL TRIFENATATE
     Dosage: NHALE 1 PUFF DAILY INTO THE LUNGS?100 MCG
     Dates: start: 20230510, end: 20231229

REACTIONS (2)
  - Off label use [Unknown]
  - Cough [Unknown]
